FAERS Safety Report 17730787 (Version 1)
Quarter: 2020Q2

REPORT INFORMATION
  Report Type: Report from Study
  Country: TW (occurrence: TW)
  Receive Date: 20200430
  Receipt Date: 20200430
  Transmission Date: 20200714
  Serious: Yes (Other)
  Sender: FDA-Public Use
  Company Number: TW-ROCHE-2588884

PATIENT

DRUGS (2)
  1. RIBAVIRIN. [Suspect]
     Active Substance: RIBAVIRIN
     Indication: HEPATITIS C
     Dosage: DAILY DOSE 1000 MG FOR THOSE {75 KG AND 1200 MG FOR THOSE }/75 KG
     Route: 048
  2. ELBASVIR;GRAZOPREVIR [Suspect]
     Active Substance: ELBASVIR\GRAZOPREVIR
     Indication: HEPATITIS C
     Dosage: 50/100 MG, DAILY.
     Route: 048

REACTIONS (6)
  - Rash [Unknown]
  - Delirium [Unknown]
  - Autoimmune hepatitis [Unknown]
  - Diarrhoea [Unknown]
  - Irritability [Unknown]
  - Pruritus [Unknown]
